FAERS Safety Report 14590701 (Version 2)
Quarter: 2018Q2

REPORT INFORMATION
  Report Type: Spontaneous
  Country: FR (occurrence: FR)
  Receive Date: 20180302
  Receipt Date: 20180423
  Transmission Date: 20180711
  Serious: Yes (Other)
  Sender: FDA-Public Use
  Company Number: FR-ASTRAZENECA-2018SE23643

PATIENT
  Age: 24 Year
  Sex: Female
  Weight: 61 kg

DRUGS (2)
  1. SYMBICORT [Suspect]
     Active Substance: BUDESONIDE\FORMOTEROL FUMARATE DIHYDRATE
     Indication: ASTHMA
     Dosage: 400UG/INHAL DAILY
     Route: 055
     Dates: start: 20120101, end: 20171115
  2. VENTOLINE [Concomitant]
     Active Substance: ALBUTEROL
     Indication: ASTHMA
     Dosage: INTERMITTENT
     Route: 055
     Dates: start: 20120101

REACTIONS (5)
  - Maternal exposure during pregnancy [Recovering/Resolving]
  - Fractional exhaled nitric oxide increased [Recovering/Resolving]
  - Condition aggravated [Recovering/Resolving]
  - Therapy cessation [Recovering/Resolving]
  - Asthma [Recovering/Resolving]

NARRATIVE: CASE EVENT DATE: 20170429
